FAERS Safety Report 14459658 (Version 2)
Quarter: 2018Q3

REPORT INFORMATION
  Report Type: Report from Study
  Country: US (occurrence: US)
  Receive Date: 20180130
  Receipt Date: 20180829
  Transmission Date: 20181010
  Serious: No
  Sender: FDA-Public Use
  Company Number: US-THERATECHNOLOGIES, INC.-TH-2018-00176

PATIENT

DRUGS (28)
  1. EGRIFTA [Suspect]
     Active Substance: TESAMORELIN
     Indication: HIV INFECTION
     Dosage: 2 MG MILLIGRAM(S), DAILY DOSE
     Route: 058
     Dates: start: 20171018
  2. OXYCODONE [Concomitant]
     Active Substance: OXYCODONE
     Dosage: 30 MG MILLIGRAM(S), UNK
     Dates: start: 20181115
  3. CHROMIUM PICOLINAT [Concomitant]
     Dosage: UNK
     Dates: start: 20180323
  4. VITAMIN C [Concomitant]
     Active Substance: ASCORBIC ACID
     Dosage: 500 MG MILLIGRAM(S), UNK
     Dates: start: 20180323
  5. VIREAD [Concomitant]
     Active Substance: TENOFOVIR DISOPROXIL FUMARATE
     Dosage: 250 MG MILLIGRAM(S), UNK
     Dates: start: 20171017
  6. TRAZODONE [Concomitant]
     Active Substance: TRAZODONE HYDROCHLORIDE
     Dosage: 50 MG MILLIGRAM(S), UNK
     Dates: start: 20171115
  7. MORPHINE SULPHATE [Concomitant]
     Active Substance: MORPHINE SULFATE
     Dosage: 30 MG MILLIGRAM(S), UNK
     Dates: start: 20171229
  8. GERITOL                            /00508001/ [Concomitant]
     Dosage: UNK
     Dates: start: 20171017
  9. VIREAD [Concomitant]
     Active Substance: TENOFOVIR DISOPROXIL FUMARATE
     Dosage: 300 MG MILLIGRAM(S), UNK
     Dates: start: 20171115
  10. TRAZODONE [Concomitant]
     Active Substance: TRAZODONE HYDROCHLORIDE
     Dosage: 50 MG MILLIGRAM(S), UNK
     Dates: start: 20171201
  11. OTHER THERAPEUTIC PRODUCTS [Concomitant]
     Active Substance: UNSPECIFIED INGREDIENT
     Dosage: 1000 MG MILLIGRAM(S), UNK
     Dates: start: 20171017
  12. TRAZODONE [Concomitant]
     Active Substance: TRAZODONE HYDROCHLORIDE
     Dosage: 50 MG MILLIGRAM(S), UNK
     Dates: start: 20180810
  13. MORPHINE SULPHATE [Concomitant]
     Active Substance: MORPHINE SULFATE
     Dosage: 30 MG MILLIGRAM(S), UNK
     Dates: start: 20180713, end: 20180907
  14. MORPHINE SULPHATE [Concomitant]
     Active Substance: MORPHINE SULFATE
     Dosage: 30 UNK, UNK
     Dates: start: 20180810, end: 20181005
  15. TRAZODONE [Concomitant]
     Active Substance: TRAZODONE HYDROCHLORIDE
     Dosage: 50 MG MILLIGRAM(S), UNK
     Dates: start: 20180713
  16. OXYCODONE [Concomitant]
     Active Substance: OXYCODONE
     Dosage: 30 MG MILLIGRAM(S), UNK
     Dates: start: 20171229
  17. MORPHINE SULPHATE [Concomitant]
     Active Substance: MORPHINE SULFATE
     Dosage: 30 MG MILLIGRAM(S), UNK
     Dates: start: 20171115
  18. MORPHINE SULPHATE [Concomitant]
     Active Substance: MORPHINE SULFATE
     Dosage: 30 UNK, UNK
     Dates: start: 20171228
  19. VITAMIN B12 [Concomitant]
     Active Substance: CYANOCOBALAMIN
     Dosage: 1000 MICROGRAM(S), UNK
     Dates: start: 20171017
  20. ACYCLOVIR                          /00587301/ [Concomitant]
     Active Substance: ACYCLOVIR
     Dosage: 200 MG MILLIGRAM(S), UNK
     Dates: start: 20171115
  21. TRAZODONE [Concomitant]
     Active Substance: TRAZODONE HYDROCHLORIDE
     Dosage: 50 UNK, UNK
     Dates: start: 20171229
  22. TIVICAY [Concomitant]
     Active Substance: DOLUTEGRAVIR SODIUM
     Dosage: 50 MG MILLIGRAM(S), UNK
     Dates: start: 20171115
  23. OXYCODONE [Concomitant]
     Active Substance: OXYCODONE
     Dosage: 30 MG MILLIGRAM(S), UNK
     Dates: start: 20170115
  24. OXYCODONE [Concomitant]
     Active Substance: OXYCODONE
     Dosage: 30 MG MILLIGRAM(S), UNK
     Dates: start: 20180713
  25. ALLI [Concomitant]
     Active Substance: ORLISTAT
     Dosage: 60 MG MILLIGRAM(S), UNK
     Dates: start: 20180323
  26. BIOTIN [Concomitant]
     Active Substance: BIOTIN
     Dosage: 300 MICROGRAM(S), UNK
     Dates: start: 20180323
  27. OXYCODONE [Concomitant]
     Active Substance: OXYCODONE
     Dosage: 30 UNK, UNK
     Dates: start: 20180810
  28. TONALIN CLA [Concomitant]
     Dosage: 1000 MG MILLIGRAM(S), UNK
     Dates: start: 20180323

REACTIONS (3)
  - Paraesthesia [Not Recovered/Not Resolved]
  - Hypoaesthesia [Not Recovered/Not Resolved]
  - Hypoaesthesia [Unknown]
